FAERS Safety Report 21519054 (Version 1)
Quarter: 2022Q4

REPORT INFORMATION
  Report Type: Spontaneous
  Country: US (occurrence: None)
  Receive Date: 20221027
  Receipt Date: 20221027
  Transmission Date: 20230113
  Serious: No
  Sender: FDA-Public Use
  Company Number: None

PATIENT
  Sex: 0

DRUGS (2)
  1. INTRALIPID [Suspect]
     Active Substance: EGG PHOSPHOLIPIDS\GLYCERIN\SOYBEAN OIL
  2. DEVICE [Suspect]
     Active Substance: DEVICE

REACTIONS (4)
  - Product packaging confusion [None]
  - Product storage error [None]
  - Circumstance or information capable of leading to medication error [None]
  - Wrong product administered [None]
